FAERS Safety Report 17609356 (Version 1)
Quarter: 2020Q1

REPORT INFORMATION
  Report Type: Spontaneous
  Country: US (occurrence: US)
  Receive Date: 20200330
  Receipt Date: 20200330
  Transmission Date: 20200409
  Serious: No
  Sender: FDA-Public Use
  Company Number: None

PATIENT

DRUGS (1)
  1. AFINITOR [Suspect]
     Active Substance: EVEROLIMUS
     Indication: MENINGIOMA BENIGN
     Route: 048
     Dates: start: 202003

REACTIONS (2)
  - Off label use [None]
  - Meningioma benign [None]

NARRATIVE: CASE EVENT DATE: 20200330
